FAERS Safety Report 4655827-8 (Version None)
Quarter: 2005Q2

REPORT INFORMATION
  Report Type: 
  Country: None (occurrence: None)
  Receive Date: 20050509
  Receipt Date: 20050427
  Transmission Date: 20051028
  Serious: Yes (Hospitalization)
  Sender: FDA-Public Use
  Company Number: JP-JNJFOC-20050400315

PATIENT
  Sex: Female
  Weight: 43 kg

DRUGS (16)
  1. REMICADE [Suspect]
     Route: 042
  2. REMICADE [Suspect]
     Route: 042
  3. REMICADE [Suspect]
     Route: 042
  4. REMICADE [Suspect]
     Route: 042
  5. REMICADE [Suspect]
     Indication: RHEUMATOID ARTHRITIS
     Route: 042
  6. PREDNISOLONE [Suspect]
     Indication: RHEUMATOID ARTHRITIS
     Route: 049
  7. METHOTREXATE [Concomitant]
     Route: 049
  8. METHOTREXATE [Concomitant]
     Route: 049
  9. METHOTREXATE [Concomitant]
     Indication: RHEUMATOID ARTHRITIS
     Route: 049
  10. RHEUMATREX [Concomitant]
     Indication: RHEUMATOID ARTHRITIS
     Route: 049
  11. VOLTAREN [Concomitant]
     Indication: RHEUMATOID ARTHRITIS
     Route: 049
  12. KETOPROFEN [Concomitant]
     Indication: RHEUMATOID ARTHRITIS
     Route: 049
  13. CYTOTEC [Concomitant]
     Route: 049
  14. FERROMIA [Concomitant]
     Route: 049
  15. TAKEPRON [Concomitant]
     Indication: GASTRIC ULCER
     Route: 049
  16. BONALON [Concomitant]
     Indication: OSTEOPOROSIS
     Route: 049

REACTIONS (5)
  - ABSCESS [None]
  - DRUG INEFFECTIVE [None]
  - MYCOBACTERIAL INFECTION [None]
  - PERICARDITIS [None]
  - RIB FRACTURE [None]
